FAERS Safety Report 9195668 (Version 1)
Quarter: 2013Q1

REPORT INFORMATION
  Report Type: Spontaneous
  Country: US (occurrence: US)
  Receive Date: 20130328
  Receipt Date: 20130328
  Transmission Date: 20140127
  Serious: Yes (Other)
  Sender: FDA-Public Use
  Company Number: US-AMGEN-USASP2013020674

PATIENT
  Age: 58 Year
  Sex: Male

DRUGS (3)
  1. ENBREL [Suspect]
     Indication: RHEUMATOID ARTHRITIS
     Dosage: 50 MG, QWK
     Dates: start: 20130130
  2. CORTICOSTEROIDS [Suspect]
     Dosage: UNK
  3. METHOTREXATE [Concomitant]
     Dosage: UNK 8 TABLETS WEEKLY FOR 3 MONTHS

REACTIONS (8)
  - Weight increased [Not Recovered/Not Resolved]
  - Epistaxis [Recovered/Resolved]
  - Muscle spasms [Recovered/Resolved]
  - Impaired healing [Unknown]
  - Musculoskeletal stiffness [Not Recovered/Not Resolved]
  - Joint swelling [Not Recovered/Not Resolved]
  - Hypertension [Unknown]
  - Injection site pain [Recovered/Resolved]
